FAERS Safety Report 9432694 (Version 1)
Quarter: 2013Q3

REPORT INFORMATION
  Report Type: Spontaneous
  Country: DE (occurrence: DE)
  Receive Date: 20130731
  Receipt Date: 20130731
  Transmission Date: 20140515
  Serious: Yes (Other)
  Sender: FDA-Public Use
  Company Number: DE-SANOFI-AVENTIS-2013SA075635

PATIENT
  Sex: Female

DRUGS (1)
  1. RHINISAN [Suspect]
     Indication: NASAL POLYPS
     Route: 045
     Dates: start: 2012, end: 2013

REACTIONS (2)
  - Cognitive disorder [Not Recovered/Not Resolved]
  - Memory impairment [Not Recovered/Not Resolved]
